FAERS Safety Report 18129891 (Version 1)
Quarter: 2020Q3

REPORT INFORMATION
  Report Type: Spontaneous
  Country: US (occurrence: US)
  Receive Date: 20200810
  Receipt Date: 20200810
  Transmission Date: 20201103
  Serious: No
  Sender: FDA-Public Use
  Company Number: US-PERRIGO-20US003878

PATIENT
  Age: 86 Year
  Sex: Female
  Weight: 58.96 kg

DRUGS (7)
  1. LEVOTHYROXINE. [Concomitant]
     Active Substance: LEVOTHYROXINE
     Indication: POSTPARTUM HYPOPITUITARISM
     Dosage: UNK
     Route: 065
  2. LORATADINE. [Suspect]
     Active Substance: LORATADINE
     Indication: THROAT IRRITATION
     Dosage: 10 UNK
     Route: 048
     Dates: start: 201912, end: 202002
  3. LORATADINE. [Suspect]
     Active Substance: LORATADINE
     Indication: RHINORRHOEA
     Dosage: 10 MG, QD
     Route: 048
     Dates: start: 201912, end: 202002
  4. LORATADINE. [Suspect]
     Active Substance: LORATADINE
     Indication: DERMATITIS ATOPIC
  5. PREDNISONE. [Concomitant]
     Active Substance: PREDNISONE
     Indication: POSTPARTUM HYPOPITUITARISM
     Dosage: UNK
     Route: 065
     Dates: end: 202002
  6. ENALAPRIL [Concomitant]
     Active Substance: ENALAPRIL
     Indication: HYPOTENSION
     Dosage: UNK
     Route: 065
  7. LORATADINE. [Suspect]
     Active Substance: LORATADINE
     Indication: DERMATITIS CONTACT

REACTIONS (1)
  - Drug ineffective for unapproved indication [Unknown]

NARRATIVE: CASE EVENT DATE: 201912
